FAERS Safety Report 5763640-3 (Version None)
Quarter: 2008Q2

REPORT INFORMATION
  Report Type: 
  Country: None (occurrence: None)
  Receive Date: 20080610
  Receipt Date: 20080107
  Transmission Date: 20081010
  Serious: No
  Sender: FDA-Public Use
  Company Number: US-BAYER-200810539NA

PATIENT
  Age: 46 Year
  Sex: Female
  Weight: 73 kg

DRUGS (3)
  1. MIRENA [Suspect]
     Indication: CONTRACEPTION
     Route: 015
     Dates: start: 20071026, end: 20071105
  2. WELLBUTRIN [Concomitant]
     Indication: DEPRESSION
     Route: 048
     Dates: start: 20060105
  3. PROZAC [Concomitant]
     Indication: DEPRESSION
     Route: 048
     Dates: start: 20071105

REACTIONS (2)
  - COMPLICATION OF DEVICE INSERTION [None]
  - INTRA-UTERINE CONTRACEPTIVE DEVICE EXPELLED [None]
